FAERS Safety Report 7266995-6 (Version None)
Quarter: 2011Q1

REPORT INFORMATION
  Report Type: 
  Country: None (occurrence: None)
  Receive Date: 20110120
  Receipt Date: 20110106
  Transmission Date: 20110831
  Serious: Yes (Hospitalization, Other)
  Sender: FDA-Public Use
  Company Number: CA-JNJFOC-20070506688

PATIENT
  Age: 65 Year
  Sex: Female
  Weight: 54.2 kg

DRUGS (8)
  1. RABEPRAZOLE SODIUM [Concomitant]
  2. DECITABINE (DECITABINE) LYOPHILIZED POWDER [Suspect]
     Indication: CHRONIC MYELOID LEUKAEMIA
     Dosage: 23.4 MG/M2, 1 IN 1 DAY, INTRAVENOUS; 15 MG/M2, IN 1 DAY, INTRAVENOUS
     Route: 042
     Dates: start: 20030512, end: 20030815
  3. DECITABINE (DECITABINE) LYOPHILIZED POWDER [Suspect]
     Indication: CHRONIC MYELOID LEUKAEMIA
     Dosage: 23.4 MG/M2, 1 IN 1 DAY, INTRAVENOUS; 15 MG/M2, IN 1 DAY, INTRAVENOUS
     Route: 042
     Dates: start: 20030414, end: 20030815
  4. RED BLOOD CELL TRANSFUSION [Concomitant]
  5. POTASSIUM CHLORIDE [Concomitant]
  6. MAGNESIUM GLUCOHEPTONATE (MAGNESIUM GLUCEPTATE) [Concomitant]
  7. LEVOTHYROXINE SODIUM [Concomitant]
  8. MICRO-K (POTASSIUM CHLORIDE) [Concomitant]

REACTIONS (12)
  - CHILLS [None]
  - CROHN'S DISEASE [None]
  - GASTROINTESTINAL NECROSIS [None]
  - INTESTINAL FISTULA [None]
  - COMPUTERISED TOMOGRAM ABNORMAL [None]
  - GASTROINTESTINAL HAEMORRHAGE [None]
  - PYREXIA [None]
  - ANAEMIA [None]
  - OEDEMA PERIPHERAL [None]
  - TORSADE DE POINTES [None]
  - SEPSIS [None]
  - INTESTINAL PERFORATION [None]
